FAERS Safety Report 22522891 (Version 3)
Quarter: 2023Q2

REPORT INFORMATION
  Report Type: Spontaneous
  Country: US (occurrence: US)
  Receive Date: 20230605
  Receipt Date: 20230610
  Transmission Date: 20230721
  Serious: No
  Sender: FDA-Public Use
  Company Number: US-002147023-NVSC2023US124057

PATIENT
  Sex: Female

DRUGS (1)
  1. PLUVICTO [Suspect]
     Active Substance: LUTETIUM LU-177 VIPIVOTIDE TETRAXETAN
     Indication: Product used for unknown indication
     Dosage: UNK
     Route: 065
     Dates: start: 20220921

REACTIONS (8)
  - Aphthous ulcer [Unknown]
  - Gingival pain [Unknown]
  - Discomfort [Unknown]
  - Feeding disorder [Recovered/Resolved]
  - Stomatitis [Not Recovered/Not Resolved]
  - Mouth ulceration [Unknown]
  - Noninfective gingivitis [Not Recovered/Not Resolved]
  - Coating in mouth [Unknown]

NARRATIVE: CASE EVENT DATE: 20221001
